FAERS Safety Report 15134002 (Version 1)
Quarter: 2018Q3

REPORT INFORMATION
  Report Type: Report from Study
  Country: BR (occurrence: BR)
  Receive Date: 20180712
  Receipt Date: 20180712
  Transmission Date: 20181010
  Serious: Yes (Other)
  Sender: FDA-Public Use
  Company Number: PHHY2018BR043346

PATIENT
  Age: 79 Year
  Sex: Female
  Weight: 46 kg

DRUGS (2)
  1. ZOMETA [Suspect]
     Active Substance: ZOLEDRONIC ACID
     Indication: OSTEOPOROSIS
     Dosage: 4 MG/ 100 ML, Q12MO (ONCE A YEAR)
     Route: 042
     Dates: start: 2014, end: 2014
  2. ACLASTA [Suspect]
     Active Substance: ZOLEDRONIC ACID
     Indication: OSTEOPOROSIS
     Dosage: 5 MG/ 100 MG, Q12MO (ONCE A YEAR)
     Route: 042
     Dates: start: 2015, end: 2017

REACTIONS (6)
  - Product use in unapproved indication [Unknown]
  - Renal disorder [Unknown]
  - Angiopathy [Unknown]
  - Inappropriate schedule of drug administration [Unknown]
  - Malaise [Unknown]
  - Vascular dementia [Unknown]

NARRATIVE: CASE EVENT DATE: 201707
